FAERS Safety Report 7786824-1 (Version None)
Quarter: 2011Q3

REPORT INFORMATION
  Report Type: 
  Country: None (occurrence: None)
  Receive Date: 20110927
  Receipt Date: 20110919
  Transmission Date: 20111222
  Serious: Yes (Other)
  Sender: FDA-Public Use
  Company Number: GER/GER/11/0021229

PATIENT
  Age: 29 Year
  Sex: Female
  Weight: 66.5 kg

DRUGS (4)
  1. FOL 400 (FOLIC ACID) [Concomitant]
  2. SERTRALINE HYDROCHLORIDE [Suspect]
     Indication: DEPRESSION
     Dosage: 100-0-50, ORAL
     Route: 048
     Dates: start: 20100512
  3. PROMETHAZINE [Suspect]
     Indication: DEPRESSION
     Dosage: 30-0-30, ORAL
     Route: 048
     Dates: start: 20100327
  4. THYRONAJOD (JODTHYROX) [Concomitant]

REACTIONS (2)
  - MATERNAL EXPOSURE DURING PREGNANCY [None]
  - PLACENTA PRAEVIA [None]
